FAERS Safety Report 7958047-4 (Version None)
Quarter: 2011Q4

REPORT INFORMATION
  Report Type: 
  Country: None (occurrence: None)
  Receive Date: 20111205
  Receipt Date: 20111124
  Transmission Date: 20120403
  Serious: Yes (Life-Threatening)
  Sender: FDA-Public Use
  Company Number: JP-SANOFI-AVENTIS-2011SA077921

PATIENT
  Age: 78 Year
  Sex: Male
  Weight: 60 kg

DRUGS (22)
  1. HEPARIN [Concomitant]
     Indication: ACUTE MYOCARDIAL INFARCTION
     Dosage: DOSE:8000 UNIT(S)
     Route: 042
     Dates: start: 20100404, end: 20100404
  2. LASIX [Concomitant]
     Dates: start: 20100405, end: 20100415
  3. CARVEDILOL [Concomitant]
     Route: 048
     Dates: start: 20100406, end: 20100415
  4. CARVEDILOL [Concomitant]
     Route: 048
     Dates: start: 20100426
  5. GLUCOBAY [Concomitant]
     Route: 048
     Dates: start: 20100407
  6. PLAVIX [Suspect]
     Route: 065
     Dates: start: 20100405
  7. HEPARIN [Concomitant]
     Dosage: DOSE:15000 UNIT(S)
     Route: 042
     Dates: start: 20100404, end: 20100406
  8. CARVEDILOL [Concomitant]
     Route: 048
     Dates: start: 20100423, end: 20100425
  9. ASPIRIN [Concomitant]
     Indication: ACUTE MYOCARDIAL INFARCTION
     Route: 048
     Dates: start: 20100404, end: 20100404
  10. PLAVIX [Suspect]
     Indication: ACUTE MYOCARDIAL INFARCTION
     Dosage: LOADING TREATMENT
     Route: 065
     Dates: start: 20100404, end: 20100404
  11. ASPIRIN [Concomitant]
     Route: 048
     Dates: start: 20100405
  12. MAGNESIUM OXIDE [Concomitant]
     Route: 048
     Dates: start: 20100405
  13. ALL OTHER THERAPEUTIC PRODUCTS [Concomitant]
     Indication: ACUTE MYOCARDIAL INFARCTION
     Route: 048
     Dates: start: 20100406
  14. DOPAMINE HCL [Concomitant]
     Dates: start: 20100406, end: 20100415
  15. WARFARIN SODIUM [Concomitant]
     Route: 048
     Dates: start: 20100422
  16. ATORVASTATIN [Concomitant]
     Route: 048
     Dates: start: 20100405
  17. RABEPRAZOLE SODIUM [Concomitant]
     Route: 048
     Dates: start: 20100405
  18. DOBUTAMINE HCL [Concomitant]
     Dosage: STRENGTH:0.3%
     Dates: start: 20100408, end: 20100415
  19. CLEANAL [Concomitant]
     Route: 048
     Dates: start: 20100407
  20. METHYCOBAL [Concomitant]
     Route: 048
     Dates: start: 20100412
  21. SIGMART [Concomitant]
     Dates: start: 20100404, end: 20100406
  22. FUROSEMIDE [Concomitant]
     Route: 048
     Dates: start: 20100416

REACTIONS (1)
  - CARDIAC FAILURE [None]
